FAERS Safety Report 20335750 (Version 1)
Quarter: 2022Q1

REPORT INFORMATION
  Report Type: Report from Study
  Country: BR (occurrence: BR)
  Receive Date: 20220114
  Receipt Date: 20220114
  Transmission Date: 20220423
  Serious: Yes (Other)
  Sender: FDA-Public Use
  Company Number: BR-NOVARTISPH-NVSC2021BR129713

PATIENT
  Age: 12 Year
  Sex: Female
  Weight: 33.5 kg

DRUGS (1)
  1. OMNITROPE [Suspect]
     Active Substance: SOMATROPIN
     Indication: Growth disorder
     Dosage: 1.6 MG QD STOP DATE- IN USE
     Route: 058
     Dates: start: 20210322

REACTIONS (4)
  - Product leakage [Recovered/Resolved]
  - Incorrect dose administered [Unknown]
  - Needle issue [Unknown]
  - Product use in unapproved indication [Unknown]

NARRATIVE: CASE EVENT DATE: 20210530
